FAERS Safety Report 12619058 (Version 1)
Quarter: 2016Q3

REPORT INFORMATION
  Report Type: Spontaneous
  Country: US (occurrence: US)
  Receive Date: 20160803
  Receipt Date: 20160803
  Transmission Date: 20161109
  Serious: No
  Sender: FDA-Public Use
  Company Number: US-009507513-1607USA011002

PATIENT
  Sex: Female

DRUGS (1)
  1. NASONEX [Suspect]
     Active Substance: MOMETASONE FUROATE
     Dosage: 2 DF, QD, 1 SPRAY IN EACH NOSTRIL ONCE A DAY
     Route: 045

REACTIONS (2)
  - Product quality issue [Unknown]
  - Intentional product misuse [Unknown]
